FAERS Safety Report 8455857-4 (Version None)
Quarter: 2012Q2

REPORT INFORMATION
  Report Type: 
  Country: None (occurrence: None)
  Receive Date: 20120621
  Receipt Date: 20120610
  Transmission Date: 20120825
  Serious: Yes (Life-Threatening)
  Sender: FDA-Public Use
  Company Number: CA-JNJFOC-20120605402

PATIENT
  Sex: Female
  Weight: 60 kg

DRUGS (8)
  1. ACETAMINOPHEN [Concomitant]
     Route: 048
  2. REMICADE [Suspect]
     Route: 042
     Dates: start: 20120610
  3. MAXERAN [Concomitant]
     Indication: PREMEDICATION
     Route: 048
  4. REMICADE [Suspect]
     Indication: CROHN'S DISEASE
     Route: 042
     Dates: start: 20120217
  5. BENADRYL [Suspect]
     Indication: PRODUCT USED FOR UNKNOWN INDICATION
     Dosage: 2X25 MG DOSES ONCE REACTING AND THEN 25 MINI BAG ONE HOUR LATER DOSE COMPLETED
     Route: 042
  6. BENADRYL [Suspect]
     Indication: PREMEDICATION
     Route: 048
  7. HYDROCORTISONE [Concomitant]
     Indication: PREMEDICATION
     Route: 042
  8. FLAGYL [Concomitant]
     Indication: FISTULA
     Route: 065

REACTIONS (4)
  - INFUSION RELATED REACTION [None]
  - URTICARIA [None]
  - PRURITUS GENERALISED [None]
  - SOMNOLENCE [None]
